FAERS Safety Report 5198448-3 (Version None)
Quarter: 2006Q4

REPORT INFORMATION
  Report Type: 
  Country: None (occurrence: None)
  Receive Date: 20061229
  Receipt Date: 20061229
  Transmission Date: 20070319
  Serious: Yes (Hospitalization)
  Sender: FDA-Public Use
  Company Number: None

PATIENT
  Sex: Female
  Weight: 68 kg

DRUGS (2)
  1. CIPRO [Suspect]
     Indication: INFECTION
     Dosage: 750 MG BID PO
     Route: 048
     Dates: start: 20061128, end: 20061213
  2. AMARYL [Suspect]
     Indication: DIABETES MELLITUS NON-INSULIN-DEPENDENT
     Dosage: 4 MG DAILY PO
     Route: 048
     Dates: start: 20061207, end: 20061210

REACTIONS (3)
  - DRUG INTERACTION [None]
  - HYPOGLYCAEMIA [None]
  - RENAL IMPAIRMENT [None]
